FAERS Safety Report 11617255 (Version 1)
Quarter: 2015Q4

REPORT INFORMATION
  Report Type: Spontaneous
  Country: US (occurrence: US)
  Receive Date: 20151009
  Receipt Date: 20151009
  Transmission Date: 20160304
  Serious: Yes (Hospitalization, Other)
  Sender: FDA-Public Use
  Company Number: US-AMGEN-USASP2015104232

PATIENT
  Age: 59 Year
  Sex: Female

DRUGS (1)
  1. NEULASTA [Suspect]
     Active Substance: PEGFILGRASTIM
     Indication: PRODUCT USED FOR UNKNOWN INDICATION
     Dosage: UNK
     Route: 065

REACTIONS (9)
  - Visual impairment [Unknown]
  - Malaise [Unknown]
  - Musculoskeletal pain [Unknown]
  - Loss of consciousness [Unknown]
  - Splenic rupture [Unknown]
  - White blood cell count increased [Unknown]
  - Incorrect route of drug administration [Unknown]
  - Abdominal pain upper [Unknown]
  - Chest pain [Unknown]
